FAERS Safety Report 7096101-2 (Version None)
Quarter: 2010Q4

REPORT INFORMATION
  Report Type: 
  Country: None (occurrence: None)
  Receive Date: 20101111
  Receipt Date: 20101104
  Transmission Date: 20110411
  Serious: Yes (Other)
  Sender: FDA-Public Use
  Company Number: TW-BAXTER-2010BH027494

PATIENT
  Sex: Female

DRUGS (3)
  1. DIANEAL [Suspect]
     Indication: PERITONEAL DIALYSIS
     Route: 033
     Dates: start: 20080901, end: 20100101
  2. DIANEAL [Suspect]
     Route: 033
     Dates: start: 20080901, end: 20100101
  3. EXTRANEAL [Suspect]
     Indication: PERITONEAL DIALYSIS
     Route: 033
     Dates: start: 20080901, end: 20100101

REACTIONS (2)
  - INFECTION [None]
  - PERITONITIS BACTERIAL [None]
